FAERS Safety Report 9005037 (Version 3)
Quarter: 2013Q1

REPORT INFORMATION
  Report Type: Spontaneous
  Country: JP (occurrence: JP)
  Receive Date: 20130109
  Receipt Date: 20130122
  Transmission Date: 20140127
  Serious: Yes (Other)
  Sender: FDA-Public Use
  Company Number: JP-UCBSA-074626

PATIENT
  Age: 59 Year
  Sex: Male

DRUGS (4)
  1. E KEPPRA [Suspect]
     Route: 048
     Dates: start: 20121012, end: 20121213
  2. DEPAKENE-R [Concomitant]
     Dosage: DAILY DOSE :800 MG
     Route: 048
  3. MYSTAN [Concomitant]
     Dosage: DAILY DOSE:10 MG
     Route: 048
  4. LANDSEN [Concomitant]
     Dosage: DAILY DOSE:0.5 MG
     Route: 048

REACTIONS (1)
  - Platelet count decreased [Recovering/Resolving]
